FAERS Safety Report 7770550-9 (Version None)
Quarter: 2011Q3

REPORT INFORMATION
  Report Type: 
  Country: None (occurrence: None)
  Receive Date: 20110922
  Receipt Date: 20110114
  Transmission Date: 20111222
  Serious: No
  Sender: FDA-Public Use
  Company Number: US-ASTRAZENECA-2010SE58244

PATIENT
  Age: 53 Year
  Sex: Female
  Weight: 81.6 kg

DRUGS (3)
  1. KLONOPIN [Concomitant]
     Dosage: 1-2 PRN
     Route: 048
  2. WELLBUTRIN [Concomitant]
     Dosage: BID
     Route: 048
  3. SEROQUEL XR [Suspect]
     Route: 048
     Dates: start: 20101101

REACTIONS (5)
  - NIGHT SWEATS [None]
  - INSOMNIA [None]
  - BLOOD PRESSURE INCREASED [None]
  - DIARRHOEA [None]
  - ABDOMINAL DISCOMFORT [None]
